FAERS Safety Report 8605647-4 (Version None)
Quarter: 2012Q3

REPORT INFORMATION
  Report Type: 
  Country: None (occurrence: None)
  Receive Date: 20120820
  Receipt Date: 20120816
  Transmission Date: 20120928
  Serious: Yes (Other)
  Sender: FDA-Public Use
  Company Number: US-BAYER-2012-084976

PATIENT
  Sex: Female

DRUGS (1)
  1. ULTRAVIST 150 [Suspect]
     Indication: PRODUCT USED FOR UNKNOWN INDICATION
     Dosage: 150 ML, ONCE
     Route: 042

REACTIONS (6)
  - COUGH [None]
  - HYPOTENSION [None]
  - SNEEZING [None]
  - ANAPHYLACTIC REACTION [None]
  - NASAL CONGESTION [None]
  - OEDEMA [None]
